FAERS Safety Report 16821821 (Version 1)
Quarter: 2019Q3

REPORT INFORMATION
  Report Type: Spontaneous
  Country: US (occurrence: US)
  Receive Date: 20190726
  Receipt Date: 20190726
  Transmission Date: 20191005
  Serious: Yes (Other)
  Sender: FDA-Public Use
  Company Number: None

PATIENT
  Age: 60 Year
  Sex: Female

DRUGS (18)
  1. POTASSIUM CHLORIDE. [Concomitant]
     Active Substance: POTASSIUM CHLORIDE
  2. ADVAIR HFA [Concomitant]
     Active Substance: FLUTICASONE PROPIONATE\SALMETEROL XINAFOATE
  3. BUMETANIDE. [Concomitant]
     Active Substance: BUMETANIDE
  4. ATORVASTATIN [Concomitant]
     Active Substance: ATORVASTATIN
  5. FERROU SULFATE [Concomitant]
  6. BISACODYL. [Concomitant]
     Active Substance: BISACODYL
  7. SPIRONOLACTONE. [Concomitant]
     Active Substance: SPIRONOLACTONE
  8. AMBRISENTAN 5MG TABLETS 30/BO: 5MG [Suspect]
     Active Substance: AMBRISENTAN
     Indication: SCLERODERMA
     Route: 048
     Dates: start: 201811
  9. ASPIRIN. [Concomitant]
     Active Substance: ASPIRIN
  10. LEVOTHYROXINE. [Concomitant]
     Active Substance: LEVOTHYROXINE
  11. TRIAMCINOLONE TOP CREAM [Concomitant]
  12. TRAZODONE [Concomitant]
     Active Substance: TRAZODONE HYDROCHLORIDE
  13. DIGOXIN. [Concomitant]
     Active Substance: DIGOXIN
  14. QUAIFENESIN AC [Concomitant]
  15. HYDROXYCHLOROQUINE [Concomitant]
     Active Substance: HYDROXYCHLOROQUINE
  16. ALBUTEROL HFA [Concomitant]
     Active Substance: ALBUTEROL SULFATE
  17. SILDENAFIL. [Concomitant]
     Active Substance: SILDENAFIL
  18. PANTOPRAZOLE [Concomitant]
     Active Substance: PANTOPRAZOLE

REACTIONS (3)
  - Palpitations [None]
  - Chest discomfort [None]
  - Dizziness [None]

NARRATIVE: CASE EVENT DATE: 20190630
